FAERS Safety Report 16816141 (Version 2)
Quarter: 2019Q4

REPORT INFORMATION
  Report Type: Spontaneous
  Country: IT (occurrence: IT)
  Receive Date: 20190917
  Receipt Date: 20191126
  Transmission Date: 20200122
  Serious: Yes (Other)
  Sender: FDA-Public Use
  Company Number: PHHY2019IT213917

PATIENT
  Age: 67 Year
  Sex: Male

DRUGS (2)
  1. CAPECITABINE. [Concomitant]
     Active Substance: CAPECITABINE
     Indication: GASTROINTESTINAL NEOPLASM
     Dosage: UNK UNK, CYCLIC (5)
     Route: 065
  2. OXALIPLATIN. [Suspect]
     Active Substance: OXALIPLATIN
     Indication: GASTROINTESTINAL NEOPLASM
     Dosage: UNK, (5 CYCLES)
     Route: 065

REACTIONS (5)
  - Product use in unapproved indication [Unknown]
  - Non-cirrhotic portal hypertension [Not Recovered/Not Resolved]
  - Liver disorder [Unknown]
  - Oesophageal varices haemorrhage [Recovering/Resolving]
  - Portal shunt [Unknown]
